FAERS Safety Report 11057474 (Version 3)
Quarter: 2015Q2

REPORT INFORMATION
  Report Type: Report from Study
  Country: US (occurrence: US)
  Receive Date: 20150422
  Receipt Date: 20150430
  Transmission Date: 20150821
  Serious: Yes (Hospitalization)
  Sender: FDA-Public Use
  Company Number: US-009507513-1504USA014909

PATIENT
  Age: 63 Year
  Sex: Female
  Weight: 70.9 kg

DRUGS (26)
  1. MS CONTIN [Concomitant]
     Active Substance: MORPHINE SULFATE
     Indication: PAIN
     Dosage: 15 MG, BID
     Route: 048
     Dates: start: 20150127
  2. ADVAIR HFA [Concomitant]
     Active Substance: FLUTICASONE PROPIONATE\SALMETEROL XINAFOATE
     Indication: DYSPNOEA
     Dosage: TOTAL DAILY DOSE: 1 PUFF, PRN
     Route: 055
     Dates: start: 20150119, end: 20150406
  3. CYANOCOBALAMIN. [Concomitant]
     Active Substance: CYANOCOBALAMIN
     Indication: PREMEDICATION
     Dosage: TOTAL DAILY DOSE: 1000 MICROGRAM, FREQUENCY: OTHER
     Route: 030
     Dates: start: 20150402
  4. MORPHINE SULFATE. [Concomitant]
     Active Substance: MORPHINE SULFATE
     Indication: PAIN
     Dosage: TOTAL DAILY DOSE 90 MG, PRN
     Route: 048
     Dates: start: 20150127
  5. MILK OF MAGNESIA [Concomitant]
     Active Substance: MAGNESIUM HYDROXIDE
     Indication: CONSTIPATION PROPHYLAXIS
     Dosage: TOTAL DAILY DOSE: 30 ML, PRN
     Route: 048
     Dates: start: 20150123
  6. MOTRIN IB [Concomitant]
     Active Substance: IBUPROFEN
     Indication: HEADACHE
  7. CELEXA [Concomitant]
     Active Substance: CITALOPRAM HYDROBROMIDE
     Indication: ANTIDEPRESSANT THERAPY
     Dosage: 20 MG, QD
     Route: 048
     Dates: start: 20130803
  8. VIACTIV SOFT CALCIUM CHEWS [Concomitant]
     Indication: OSTEOPOROSIS PROPHYLAXIS
     Dosage: 2 TABLET, QD
     Route: 048
     Dates: start: 20100402
  9. FERROUS SULFATE [Concomitant]
     Active Substance: FERROUS SULFATE\FERROUS SULFATE, DRIED
     Indication: ROUTINE HEALTH MAINTENANCE
     Dosage: 325 MG, QD
     Route: 048
     Dates: start: 20150119
  10. MOTRIN IB [Concomitant]
     Active Substance: IBUPROFEN
     Indication: PAIN
     Dosage: TOTAL DAILY DOSE: 400 MG, PRN
     Route: 048
     Dates: start: 20150119
  11. PROTONIX [Concomitant]
     Active Substance: PANTOPRAZOLE SODIUM
     Indication: DYSPEPSIA
     Dosage: 40 MG, QD
     Route: 048
     Dates: start: 20150119
  12. PROTONIX [Concomitant]
     Active Substance: PANTOPRAZOLE SODIUM
     Indication: PROPHYLAXIS AGAINST GASTROINTESTINAL ULCER
  13. PEMETREXED [Suspect]
     Active Substance: PEMETREXED
     Indication: NON-SMALL CELL LUNG CANCER
     Dosage: 500 MG/M2, Q3W
     Route: 042
     Dates: start: 20150407, end: 20150407
  14. THERA M [Concomitant]
     Indication: ROUTINE HEALTH MAINTENANCE
     Dosage: 1 TABLET, QD
     Route: 048
     Dates: start: 20150119
  15. ALDACTONE [Concomitant]
     Active Substance: SPIRONOLACTONE
     Indication: DIURETIC THERAPY
     Dosage: 25 MG, QD
     Route: 048
     Dates: start: 20150123
  16. EVISTA [Concomitant]
     Active Substance: RALOXIFENE HYDROCHLORIDE
     Indication: OSTEOPOROSIS PROPHYLAXIS
     Dosage: 60 MG, QD
     Route: 048
     Dates: start: 20130803
  17. PEMBROLIZUMAB. [Suspect]
     Active Substance: PEMBROLIZUMAB
     Dosage: UNK
  18. PROVENTIL [Concomitant]
     Active Substance: ALBUTEROL
     Indication: DYSPNOEA
     Dosage: TOTAL DAILY DOSE: 2 PUFF PRN; FORMATION:INHALANT
     Route: 055
     Dates: start: 20130605, end: 20150406
  19. ZANAFLEX [Concomitant]
     Active Substance: TIZANIDINE HYDROCHLORIDE
     Indication: MUSCLE SPASMS
     Dosage: TOTAL DAILY DOSE: 6 MG, PRN
     Route: 048
     Dates: start: 20150102, end: 20150406
  20. PEMBROLIZUMAB. [Suspect]
     Active Substance: PEMBROLIZUMAB
     Indication: NON-SMALL CELL LUNG CANCER
     Dosage: UNK UNK, Q3W
     Route: 042
     Dates: start: 20150407, end: 20150407
  21. ALOXI [Concomitant]
     Active Substance: PALONOSETRON HYDROCHLORIDE
     Indication: PREMEDICATION
     Dosage: TOTAL DAILY DOSE: 0.25 MG, FREQUENCY OTHER
     Route: 042
     Dates: start: 20150407
  22. ZOFRAN [Concomitant]
     Active Substance: ONDANSETRON HYDROCHLORIDE
     Indication: PROPHYLAXIS OF NAUSEA AND VOMITING
     Dosage: TOTAL DAILY DOSE: 24 MG, PRN
     Route: 048
     Dates: start: 20150205
  23. CHOLECALCIFEROL [Concomitant]
     Active Substance: CHOLECALCIFEROL
     Indication: ROUTINE HEALTH MAINTENANCE
     Dosage: 1000 U, QD
     Route: 048
     Dates: start: 20150119
  24. CARBOPLATIN. [Suspect]
     Active Substance: CARBOPLATIN
     Indication: NON-SMALL CELL LUNG CANCER
     Dosage: UNK, Q3W
     Route: 042
     Dates: start: 20150407, end: 20150407
  25. ATIVAN [Concomitant]
     Active Substance: LORAZEPAM
     Indication: ANXIETY
     Dosage: TOTAL DAILY DOSE: 1.5 MG, PRN
     Route: 048
     Dates: start: 20150210
  26. FOLIC ACID. [Concomitant]
     Active Substance: FOLIC ACID
     Indication: PREMEDICATION
     Dosage: 1 MG, QD
     Route: 048
     Dates: start: 20150402

REACTIONS (3)
  - Confusional state [Recovering/Resolving]
  - Acute kidney injury [Recovering/Resolving]
  - Dyspnoea [Recovered/Resolved]

NARRATIVE: CASE EVENT DATE: 20150412
